FAERS Safety Report 9395054 (Version 3)
Quarter: 2013Q4

REPORT INFORMATION
  Report Type: Spontaneous
  Country: JP (occurrence: JP)
  Receive Date: 20130711
  Receipt Date: 20131220
  Transmission Date: 20140711
  Serious: Yes (Other)
  Sender: FDA-Public Use
  Company Number: JP-PFIZER INC-2013202794

PATIENT
  Age: 83 Year
  Sex: Male
  Weight: 85 kg

DRUGS (8)
  1. LYRICA [Suspect]
     Indication: POST HERPETIC NEURALGIA
     Dosage: 75 MG, 1X/DAY
     Route: 048
     Dates: start: 20130121, end: 20130217
  2. LYRICA [Suspect]
     Indication: DIABETIC NEUROPATHY
     Dosage: 75 MG, 2X/DAY
     Route: 048
     Dates: start: 20130218, end: 20130318
  3. LYRICA [Suspect]
     Dosage: 75 MG, 1X/DAY
     Route: 048
     Dates: start: 20130401, end: 20130512
  4. LYRICA [Suspect]
     Dosage: 75 MG, 2X/DAY
     Route: 048
     Dates: start: 20130513, end: 20130624
  5. GABAPEN [Concomitant]
     Dosage: 200 MG, UNK
     Route: 048
  6. AMARYL [Concomitant]
     Dosage: 1 MG, UNK
     Route: 048
  7. ACINON [Concomitant]
     Dosage: 150 MG, UNK
     Route: 048
  8. LUPRAC [Concomitant]
     Dosage: 4 MG, UNK
     Route: 048

REACTIONS (3)
  - Generalised oedema [Unknown]
  - Oedema peripheral [Recovered/Resolved]
  - Weight fluctuation [Unknown]
